FAERS Safety Report 14143587 (Version 2)
Quarter: 2017Q4

REPORT INFORMATION
  Report Type: Spontaneous
  Country: FR (occurrence: FR)
  Receive Date: 20171030
  Receipt Date: 20171206
  Transmission Date: 20180321
  Serious: Yes (Other)
  Sender: FDA-Public Use
  Company Number: FR-MERCK KGAA-2032753

PATIENT
  Age: 36 Year
  Sex: Female

DRUGS (4)
  1. LUTERAN [Concomitant]
     Active Substance: CHLORMADINONE ACETATE
  2. NOVOTHYROX [Suspect]
     Active Substance: LEVOTHYROXINE SODIUM
     Indication: HYPOTHYROIDISM
     Route: 048
     Dates: start: 20170428
  3. LEVOTHYROXINE SODIUM. [Suspect]
     Active Substance: LEVOTHYROXINE SODIUM
     Route: 048
     Dates: end: 20171004
  4. DESLORATADINE. [Concomitant]
     Active Substance: DESLORATADINE

REACTIONS (14)
  - Abdominal pain [Recovering/Resolving]
  - Feeling cold [Recovering/Resolving]
  - Blood thyroid stimulating hormone normal [Unknown]
  - Headache [Recovering/Resolving]
  - Diarrhoea [Recovering/Resolving]
  - Fatigue [Recovering/Resolving]
  - Constipation [Recovering/Resolving]
  - Muscular weakness [Recovering/Resolving]
  - Myalgia [Recovering/Resolving]
  - Nausea [Recovering/Resolving]
  - Dyspnoea exertional [Recovering/Resolving]
  - Diffuse alopecia [Recovering/Resolving]
  - Weight increased [Recovering/Resolving]
  - Vertigo [Recovering/Resolving]

NARRATIVE: CASE EVENT DATE: 2017
